FAERS Safety Report 15243004 (Version 1)
Quarter: 2018Q3

REPORT INFORMATION
  Report Type: Spontaneous
  Country: GB (occurrence: GB)
  Receive Date: 20180806
  Receipt Date: 20180806
  Transmission Date: 20181010
  Serious: Yes (Other)
  Sender: FDA-Public Use
  Company Number: GB-DRREDDYS-GER/UKI/18/0102789

PATIENT
  Age: 76 Year
  Sex: Female

DRUGS (2)
  1. RIVASTIGMINE. [Suspect]
     Active Substance: RIVASTIGMINE
     Indication: PRODUCT USED FOR UNKNOWN INDICATION
     Dosage: ON 20/04/2018, 21/04/2018 AND 22/04/2018
  2. MEMANTIN [Suspect]
     Active Substance: MEMANTINE
     Indication: PRODUCT USED FOR UNKNOWN INDICATION
     Route: 048

REACTIONS (3)
  - Vomiting [Unknown]
  - Hyperhidrosis [Unknown]
  - Accidental overdose [Unknown]

NARRATIVE: CASE EVENT DATE: 20180423
